FAERS Safety Report 12973556 (Version 2)
Quarter: 2016Q4

REPORT INFORMATION
  Report Type: Spontaneous
  Country: DE (occurrence: DE)
  Receive Date: 20161124
  Receipt Date: 20161209
  Transmission Date: 20170207
  Serious: Yes (Other)
  Sender: FDA-Public Use
  Company Number: DE-JNJFOC-20161123758

PATIENT
  Age: 86 Year
  Sex: Male
  Weight: 60 kg

DRUGS (8)
  1. RAMICARD [Concomitant]
     Indication: CARDIAC FAILURE
     Route: 065
  2. XARELTO [Suspect]
     Active Substance: RIVAROXABAN
     Indication: ATRIAL FIBRILLATION
     Route: 048
     Dates: start: 20161110, end: 20161114
  3. XARELTO [Suspect]
     Active Substance: RIVAROXABAN
     Indication: ATRIAL FIBRILLATION
     Route: 048
     Dates: start: 20161114
  4. VITAMINA B12 [Concomitant]
     Route: 065
     Dates: start: 2013
  5. DIGIMERCK [Concomitant]
     Active Substance: DIGITOXIN
     Dosage: 0.070 (UNIT UNSPECIFIED)
     Route: 065
     Dates: start: 2015
  6. CARVEDILOL. [Concomitant]
     Active Substance: CARVEDILOL
     Route: 065
  7. XARELTO [Suspect]
     Active Substance: RIVAROXABAN
     Indication: ATRIAL FIBRILLATION
     Route: 048
     Dates: start: 2013
  8. SIMVASTATIN. [Concomitant]
     Active Substance: SIMVASTATIN
     Route: 065

REACTIONS (3)
  - Wrong technique in product usage process [Unknown]
  - Post procedural haemorrhage [Recovered/Resolved]
  - Gastritis [Unknown]

NARRATIVE: CASE EVENT DATE: 2015
